FAERS Safety Report 8441135-6 (Version None)
Quarter: 2012Q2

REPORT INFORMATION
  Report Type: 
  Country: None (occurrence: None)
  Receive Date: 20120615
  Receipt Date: 20120605
  Transmission Date: 20120825
  Serious: No
  Sender: FDA-Public Use
  Company Number: US-ELI_LILLY_AND_COMPANY-US201202004661

PATIENT
  Sex: Female
  Weight: 74.376 kg

DRUGS (1)
  1. CYMBALTA [Suspect]
     Indication: ANXIETY
     Dosage: 30 MG, QD
     Dates: start: 20120124, end: 20120130

REACTIONS (9)
  - TREMOR [None]
  - OCULAR ICTERUS [None]
  - SLEEP TALKING [None]
  - OCULAR HYPERAEMIA [None]
  - CONFUSIONAL STATE [None]
  - SUBCUTANEOUS HAEMATOMA [None]
  - NAUSEA [None]
  - POOR QUALITY SLEEP [None]
  - INTENTIONAL DRUG MISUSE [None]
